FAERS Safety Report 4749318-3 (Version None)
Quarter: 2005Q3

REPORT INFORMATION
  Report Type: 
  Country: None (occurrence: None)
  Receive Date: 20050812
  Receipt Date: 20050531
  Transmission Date: 20060218
  Serious: Yes (Other)
  Sender: FDA-Public Use
  Company Number: 406571

PATIENT
  Age: 37 Year
  Sex: Male

DRUGS (3)
  1. PEGASYS [Suspect]
     Indication: HEPATITIS C
     Dosage: OTHER
     Route: 050
     Dates: start: 20050323
  2. COPEGUS [Suspect]
     Indication: HEPATITIS C
     Dosage: ORAL
     Route: 048
     Dates: start: 20050323
  3. NEXIUM [Concomitant]

REACTIONS (3)
  - ANGER [None]
  - MOOD ALTERED [None]
  - SELF-INJURIOUS IDEATION [None]
